FAERS Safety Report 6131398-4 (Version None)
Quarter: 2009Q1

REPORT INFORMATION
  Report Type: 
  Country: None (occurrence: None)
  Receive Date: 20090325
  Receipt Date: 20080711
  Transmission Date: 20090719
  Serious: No
  Sender: FDA-Public Use
  Company Number: US-BRISTOL-MYERS SQUIBB COMPANY-14190417

PATIENT
  Age: 82 Year
  Sex: Male

DRUGS (6)
  1. ERBITUX [Suspect]
     Dates: start: 20080506, end: 20080506
  2. BENADRYL [Concomitant]
     Indication: PREMEDICATION
     Route: 042
  3. DECADRON [Concomitant]
     Indication: PREMEDICATION
     Route: 042
  4. ALBUTEROL [Concomitant]
     Indication: PREMEDICATION
     Route: 055
  5. IRON [Concomitant]
  6. MULTI-VITAMINS [Concomitant]

REACTIONS (3)
  - PHARYNGEAL OEDEMA [None]
  - PRURITUS [None]
  - URTICARIA [None]
